FAERS Safety Report 10071146 (Version 1)
Quarter: 2014Q2

REPORT INFORMATION
  Report Type: Spontaneous
  Country: BR (occurrence: BR)
  Receive Date: 20140410
  Receipt Date: 20140410
  Transmission Date: 20141212
  Serious: Yes (Hospitalization, Other)
  Sender: FDA-Public Use
  Company Number: BR-PFIZER INC-2014098357

PATIENT
  Age: 89 Year
  Sex: Female
  Weight: 85 kg

DRUGS (2)
  1. LIPITOR [Suspect]
     Indication: BLOOD CHOLESTEROL
     Dosage: 20 MG,  (ONE TABLET), 1X/DAY
     Route: 048
     Dates: start: 20090604
  2. VASOGARD [Concomitant]
     Dosage: UNK, (STRENGTH 100 MG)

REACTIONS (1)
  - Femur fracture [Unknown]
